FAERS Safety Report 8031716-6 (Version None)
Quarter: 2012Q1

REPORT INFORMATION
  Report Type: 
  Country: None (occurrence: None)
  Receive Date: 20120109
  Receipt Date: 20120103
  Transmission Date: 20120608
  Serious: Yes (Death, Congenital Anomaly, Other)
  Sender: FDA-Public Use
  Company Number: FR-ASTRAZENECA-2012SE00495

PATIENT
  Age: 0 Week
  Sex: Male
  Weight: 0.6 kg

DRUGS (4)
  1. LOVENOX [Suspect]
     Indication: HYPERTROPHIC CARDIOMYOPATHY
     Route: 064
  2. CELESTONE [Concomitant]
     Route: 064
     Dates: start: 20111110
  3. TENORMIN [Suspect]
     Indication: HYPERTROPHIC CARDIOMYOPATHY
     Route: 064
  4. CORDARONE [Suspect]
     Indication: HYPERTROPHIC CARDIOMYOPATHY
     Route: 064

REACTIONS (2)
  - PREMATURE BABY [None]
  - FOETAL GROWTH RESTRICTION [None]
